FAERS Safety Report 5081538-3 (Version None)
Quarter: 2006Q3

REPORT INFORMATION
  Report Type: 
  Country: None (occurrence: None)
  Receive Date: 20060811
  Receipt Date: 20060727
  Transmission Date: 20061208
  Serious: Yes (Death, Other)
  Sender: FDA-Public Use
  Company Number: USA-2005-0018324

PATIENT
  Age: 24 Year
  Sex: Male
  Weight: 92.5 kg

DRUGS (3)
  1. OXYCONTIN [Suspect]
     Indication: DRUG USE FOR UNKNOWN INDICATION
     Dosage: 1 TABLET, SINGLE
  2. ETHANOL(ETHANOL) [Suspect]
     Indication: DRUG USE FOR UNKNOWN INDICATION
  3. METOCLOPRAMIDE [Suspect]
     Indication: DRUG USE FOR UNKNOWN INDICATION

REACTIONS (14)
  - ALCOHOL POISONING [None]
  - ANOXIC ENCEPHALOPATHY [None]
  - BRAIN DEATH [None]
  - CARDIAC ARREST [None]
  - COMA [None]
  - CONVULSION [None]
  - CYANOSIS [None]
  - FOAMING AT MOUTH [None]
  - MULTIPLE DRUG OVERDOSE ACCIDENTAL [None]
  - PULMONARY EMBOLISM [None]
  - PULMONARY INFARCTION [None]
  - RESPIRATORY ARREST [None]
  - SECRETION DISCHARGE [None]
  - SUBSTANCE ABUSE [None]
